FAERS Safety Report 14664016 (Version 1)
Quarter: 2018Q1

REPORT INFORMATION
  Report Type: Spontaneous
  Country: US (occurrence: US)
  Receive Date: 20180318
  Receipt Date: 20180318
  Transmission Date: 20180509
  Serious: Yes (Disabling)
  Sender: FDA-Public Use
  Company Number: None

PATIENT
  Age: 61 Year
  Sex: Female
  Weight: 67.5 kg

DRUGS (1)
  1. CIPROFLOXACIN. [Suspect]
     Active Substance: CIPROFLOXACIN
     Indication: DIVERTICULITIS
     Dosage: ?          QUANTITY:20 TABLET(S);?
     Route: 048
     Dates: start: 20180305, end: 20180314

REACTIONS (5)
  - Musculoskeletal pain [None]
  - Paraesthesia [None]
  - Arthralgia [None]
  - Anxiety [None]
  - Pain in extremity [None]

NARRATIVE: CASE EVENT DATE: 20180311
